FAERS Safety Report 20334592 (Version 3)
Quarter: 2022Q1

REPORT INFORMATION
  Report Type: Report from Study
  Country: IL (occurrence: None)
  Receive Date: 20220114
  Receipt Date: 20220205
  Transmission Date: 20220423
  Serious: Yes (Hospitalization)
  Sender: FDA-Public Use
  Company Number: IL-ROCHE-2994932

PATIENT
  Age: 43 Year
  Sex: Male
  Weight: 82 kg

DRUGS (20)
  1. GLOFITAMAB [Suspect]
     Active Substance: GLOFITAMAB
     Indication: B-cell lymphoma
     Dosage: DOSE LAST STUDY DRUG ADMIN PRIOR AE IS 30 MGDOSE LAST STUDY DRUG ADMIN PRIOR SAE IS 30 MG: 28-DEC-20
     Route: 042
     Dates: start: 20211214
  2. OBINUTUZUMAB [Suspect]
     Active Substance: OBINUTUZUMAB
     Indication: B-cell lymphoma
     Dosage: DOSE LAST STUDY DRUG ADMIN PRIOR AE 1000 MG, DOSE LAST STUDY DRUG ADMIN PRIOR SAE 1000 MG: 07-DEC-20
     Route: 042
     Dates: start: 20211207
  3. POLATUZUMAB VEDOTIN [Suspect]
     Active Substance: POLATUZUMAB VEDOTIN
     Indication: B-cell lymphoma
     Dosage: DOSE LAST STUDY DRUG ADMIN PRIOR AE 148 MG, DOSE LAST STUDY DRUG ADMIN PRIOR SAE 148 MG: 28-DEC-2021
     Route: 042
     Dates: start: 20211208
  4. PIPERACILLIN [Concomitant]
     Active Substance: PIPERACILLIN
     Indication: Orchitis
     Dates: start: 20211231, end: 20220102
  5. DEXAMETHASONE [Concomitant]
     Active Substance: DEXAMETHASONE
     Dates: start: 20211214, end: 20211214
  6. DEXAMETHASONE [Concomitant]
     Active Substance: DEXAMETHASONE
     Route: 042
     Dates: start: 20211221, end: 20211221
  7. DEXAMETHASONE [Concomitant]
     Active Substance: DEXAMETHASONE
     Route: 042
     Dates: start: 20211228, end: 20211228
  8. DEXAMETHASONE [Concomitant]
     Active Substance: DEXAMETHASONE
     Route: 042
     Dates: start: 20211208, end: 20211208
  9. DEXAMETHASONE [Concomitant]
     Active Substance: DEXAMETHASONE
     Route: 042
     Dates: start: 20211207, end: 20211207
  10. ACETAMINOPHEN [Concomitant]
     Active Substance: ACETAMINOPHEN
     Indication: Pyrexia
     Route: 048
     Dates: start: 20211207, end: 20211207
  11. ACETAMINOPHEN [Concomitant]
     Active Substance: ACETAMINOPHEN
     Route: 048
     Dates: start: 20211221, end: 20211221
  12. ACETAMINOPHEN [Concomitant]
     Active Substance: ACETAMINOPHEN
     Route: 048
     Dates: start: 20211208, end: 20211208
  13. ACETAMINOPHEN [Concomitant]
     Active Substance: ACETAMINOPHEN
     Route: 048
     Dates: start: 20211228, end: 20211228
  14. ACETAMINOPHEN [Concomitant]
     Active Substance: ACETAMINOPHEN
     Route: 048
     Dates: start: 20211214, end: 20211214
  15. ACETAMINOPHEN [Concomitant]
     Active Substance: ACETAMINOPHEN
     Dates: start: 20211231, end: 20211231
  16. PROMETHAZINE [Concomitant]
     Active Substance: PROMETHAZINE HYDROCHLORIDE
     Route: 048
     Dates: start: 20211208, end: 20211208
  17. PROMETHAZINE [Concomitant]
     Active Substance: PROMETHAZINE HYDROCHLORIDE
     Route: 048
     Dates: start: 20211221, end: 20211221
  18. PROMETHAZINE [Concomitant]
     Active Substance: PROMETHAZINE HYDROCHLORIDE
     Route: 048
     Dates: start: 20211207, end: 20211207
  19. PROMETHAZINE [Concomitant]
     Active Substance: PROMETHAZINE HYDROCHLORIDE
     Route: 048
     Dates: start: 20211228, end: 20211228
  20. PROMETHAZINE [Concomitant]
     Active Substance: PROMETHAZINE HYDROCHLORIDE
     Route: 048
     Dates: start: 20211214, end: 20211214

REACTIONS (1)
  - Orchitis [Recovered/Resolved]

NARRATIVE: CASE EVENT DATE: 20211231
